FAERS Safety Report 4340482-7 (Version None)
Quarter: 2004Q2

REPORT INFORMATION
  Report Type: 
  Country: None (occurrence: None)
  Receive Date: 20040414
  Receipt Date: 20040406
  Transmission Date: 20050107
  Serious: Yes (Death, Hospitalization)
  Sender: FDA-Public Use
  Company Number: 200410848GDS

PATIENT
  Age: 39 Year
  Sex: Female

DRUGS (3)
  1. ADALAT CC [Suspect]
     Indication: ANGINA PECTORIS
     Dosage: 80 MG, TOTAL DAILY, ORAL
     Route: 048
  2. ISOSORBIDE DINITRATE [Concomitant]
  3. NICORANDIL [Concomitant]

REACTIONS (4)
  - ANGINA UNSTABLE [None]
  - ELECTROCARDIOGRAM ST SEGMENT ELEVATION [None]
  - MULTI-ORGAN FAILURE [None]
  - VENTRICULAR FIBRILLATION [None]
